FAERS Safety Report 11968302 (Version 1)
Quarter: 2016Q1

REPORT INFORMATION
  Report Type: Spontaneous
  Country: US (occurrence: US)
  Receive Date: 20160127
  Receipt Date: 20160127
  Transmission Date: 20160526
  Serious: No
  Sender: FDA-Public Use
  Company Number: US-PAR PHARMACEUTICAL, INC-2015SCPR013940

PATIENT

DRUGS (1)
  1. DOXYCYCLINE. [Suspect]
     Active Substance: DOXYCYCLINE
     Indication: ESCHERICHIA URINARY TRACT INFECTION
     Dosage: UNK UNK, UNKNOWN
     Route: 065

REACTIONS (1)
  - Pathogen resistance [Unknown]
